FAERS Safety Report 6034529-X (Version None)
Quarter: 2009Q1

REPORT INFORMATION
  Report Type: 
  Country: None (occurrence: None)
  Receive Date: 20090108
  Receipt Date: 20090108
  Transmission Date: 20090719
  Serious: No
  Sender: FDA-Public Use
  Company Number: None

PATIENT
  Age: 42 Year
  Sex: Female
  Weight: 88.4514 kg

DRUGS (2)
  1. CLARITIN-D [Suspect]
     Indication: MULTIPLE ALLERGIES
     Dosage: 1 PILL ONCE EVERY 12 HRS
     Dates: start: 20080824, end: 20080829
  2. CLARITIN-D [Suspect]
     Indication: MULTIPLE ALLERGIES
     Dosage: 1 PILL ONCE EVERY 12 HRS
     Dates: start: 20080910, end: 20080917

REACTIONS (1)
  - GROIN PAIN [None]
